FAERS Safety Report 5719141-1 (Version None)
Quarter: 2008Q2

REPORT INFORMATION
  Report Type: 
  Country: None (occurrence: None)
  Receive Date: 20080428
  Receipt Date: 20080208
  Transmission Date: 20081010
  Serious: No
  Sender: FDA-Public Use
  Company Number: US-BAYER-200813907NA

PATIENT
  Sex: Female
  Weight: 61 kg

DRUGS (2)
  1. MIRENA [Suspect]
     Indication: CONTRACEPTION
     Route: 015
     Dates: start: 20080114
  2. ALLEGRA [Concomitant]

REACTIONS (3)
  - ABDOMINAL PAIN [None]
  - PROCEDURAL PAIN [None]
  - VAGINAL HAEMORRHAGE [None]
